FAERS Safety Report 8881780 (Version 1)
Quarter: 2012Q4

REPORT INFORMATION
  Report Type: Report from Study
  Country: US (occurrence: US)
  Receive Date: 20121105
  Receipt Date: 20121105
  Transmission Date: 20130627
  Serious: Yes (Hospitalization)
  Sender: FDA-Public Use
  Company Number: US-JNJFOC-20121016135

PATIENT
  Age: 61 None
  Sex: Female
  Weight: 92.53 kg

DRUGS (9)
  1. REMICADE [Suspect]
     Indication: ARTHRITIS
     Dosage: every 4-5 weeks
     Route: 042
     Dates: start: 20120710
  2. REMICADE [Suspect]
     Indication: ARTHRITIS
     Route: 042
     Dates: start: 201209, end: 201209
  3. REMICADE [Suspect]
     Indication: ARTHRITIS
     Dosage: every 4-5 weeks started in SEP or OCT-2011
     Route: 042
     Dates: start: 2011, end: 20120513
  4. CLINDAMYCIN [Suspect]
     Indication: INFECTION
     Route: 065
     Dates: start: 20121016
  5. LISINOPRIL [Concomitant]
     Indication: HYPERTENSION
     Route: 048
  6. PAROXETINE [Concomitant]
     Indication: PANIC ATTACK
     Route: 048
     Dates: start: 2009
  7. OMEPRAZOLE [Concomitant]
     Indication: DYSPEPSIA
     Route: 048
     Dates: start: 2011
  8. XANAX [Concomitant]
     Indication: PANIC ATTACK
     Route: 048
     Dates: start: 2008
  9. HYDROCODONE [Concomitant]
     Indication: BACK PAIN
     Route: 048

REACTIONS (5)
  - Open fracture [Recovered/Resolved]
  - Arthritis [Not Recovered/Not Resolved]
  - Infection [Unknown]
  - Vomiting [Unknown]
  - Red blood cell count increased [Unknown]
